FAERS Safety Report 18564305 (Version 1)
Quarter: 2020Q4

REPORT INFORMATION
  Report Type: Spontaneous
  Country: US (occurrence: US)
  Receive Date: 20201130
  Receipt Date: 20201130
  Transmission Date: 20210114
  Serious: Yes (Disabling)
  Sender: FDA-Public Use
  Company Number: None

PATIENT
  Age: 46 Year
  Sex: Female
  Weight: 69.75 kg

DRUGS (10)
  1. SYNTHROID [Suspect]
     Active Substance: LEVOTHYROXINE SODIUM
     Indication: HYPOTHYROIDISM
  2. VITAMIN D3 [Concomitant]
     Active Substance: CHOLECALCIFEROL
  3. ZINC. [Concomitant]
     Active Substance: ZINC
  4. SYNTHROID [Concomitant]
     Active Substance: LEVOTHYROXINE SODIUM
  5. VITAMIN B COMPLEX [Concomitant]
     Active Substance: CYANOCOBALAMIN\DEXPANTHENOL\NIACINAMIDE\PYRIDOXINE HYDROCHLORIDE\RIBOFLAVIN 5^-PHOSPHATE SODIUM\THIAMINE HYDROCHLORIDE\VITAMIN B COMPLEX
  6. VITAMIN C [Concomitant]
     Active Substance: ASCORBIC ACID
  7. HUMALOG [Concomitant]
     Active Substance: INSULIN LISPRO
  8. MULTIVITAMIN FOR WOMEN [Concomitant]
     Active Substance: MINERALS\VITAMINS
  9. LANTUS [Concomitant]
     Active Substance: INSULIN GLARGINE
  10. HAIR SKIN AND NAILS [Concomitant]

REACTIONS (7)
  - Productive cough [None]
  - Insomnia [None]
  - Swelling face [None]
  - Cough [None]
  - Exercise tolerance decreased [None]
  - Rales [None]
  - Chest discomfort [None]

NARRATIVE: CASE EVENT DATE: 20191227
